FAERS Safety Report 20128769 (Version 4)
Quarter: 2022Q1

REPORT INFORMATION
  Report Type: Report from Study
  Country: BR (occurrence: BR)
  Receive Date: 20211130
  Receipt Date: 20220111
  Transmission Date: 20220424
  Serious: Yes (Hospitalization)
  Sender: FDA-Public Use
  Company Number: BR-CELLTRION INC.-2021BR016105

PATIENT

DRUGS (3)
  1. INFLIXIMAB [Suspect]
     Active Substance: INFLIXIMAB
     Indication: Psoriasis
     Dosage: UNK, 1 AMPOUL EVERY 2 MONTHS (ROUTE: ENDOVENOUS) (DURATION: APPROX 9 YEAR)
     Route: 042
     Dates: start: 2012
  2. INFLIXIMAB [Suspect]
     Active Substance: INFLIXIMAB
     Dosage: UNK
     Route: 065
     Dates: start: 20211126
  3. LOSARTAN POTASSIUM [Concomitant]
     Active Substance: LOSARTAN POTASSIUM
     Indication: Hypertension
     Dosage: 1 TABLET/1 NIGHT (ABOUT 4 YEARS/ONGOING)
     Route: 048

REACTIONS (6)
  - Chest pain [Recovered/Resolved]
  - Accident [Unknown]
  - Thermal burn [Unknown]
  - Haematoma [Unknown]
  - Product dose omission issue [Unknown]
  - Off label use [Unknown]

NARRATIVE: CASE EVENT DATE: 20190520
